FAERS Safety Report 25360768 (Version 1)
Quarter: 2025Q2

REPORT INFORMATION
  Report Type: Spontaneous
  Country: CN (occurrence: CN)
  Receive Date: 20250527
  Receipt Date: 20250527
  Transmission Date: 20250716
  Serious: Yes (Hospitalization)
  Sender: BAXTER
  Company Number: None

PATIENT
  Age: 67 Year
  Sex: Female
  Weight: 60 kg

DRUGS (7)
  1. GLYCERIN\LECITHIN\TRIGLYCERIDES,UNSPECIFIED LENGTH\SOYBEAN OIL [Suspect]
     Active Substance: GLYCERIN\LECITHIN\TRIGLYCERIDES,UNSPECIFIED LENGTH\SOYBEAN OIL
     Indication: Impaired gastric emptying
     Dosage: 250 ML, QD (C8-24)
     Route: 041
     Dates: start: 20250510, end: 20250512
  2. INSULIN PORK\INSULIN PURIFIED PORK [Suspect]
     Active Substance: INSULIN PORK\INSULIN PURIFIED PORK
     Indication: Impaired gastric emptying
     Dosage: 16.000000 UNITS, QD
     Route: 041
     Dates: start: 20250510, end: 20250512
  3. AMINO ACIDS INJECTION [Suspect]
     Active Substance: ALANINE\ARGININE\ASPARTIC ACID\GLUTAMIC ACID\GLYCINE\HISTIDINE\ISOLEUCINE\LEUCINE\LYSINE ACETATE\MET
     Indication: Impaired gastric emptying
     Dosage: 500 ML, QD
     Route: 041
     Dates: start: 20250503, end: 20250508
  4. POTASSIUM CHLORIDE [Suspect]
     Active Substance: POTASSIUM CHLORIDE
     Indication: Impaired gastric emptying
     Dosage: 35.000000 ML, QD
     Route: 041
     Dates: start: 20250510, end: 20250512
  5. VITAMINS [Suspect]
     Active Substance: VITAMINS
     Indication: Impaired gastric emptying
     Dosage: 1.000000 VIAL, QD (A PIECE OF)
     Route: 041
     Dates: start: 20250510, end: 20250512
  6. DEXTROSE [Suspect]
     Active Substance: DEXTROSE MONOHYDRATE
     Indication: Impaired gastric emptying
     Dosage: 500 ML, QD
     Route: 041
     Dates: start: 20250510, end: 20250512
  7. DEXTROSE [Suspect]
     Active Substance: DEXTROSE MONOHYDRATE
     Dosage: 300 ML, QD (50%)
     Route: 041
     Dates: start: 20250510, end: 20250512

REACTIONS (2)
  - Blood bilirubin increased [Recovering/Resolving]
  - Hyperbilirubinaemia [Recovering/Resolving]

NARRATIVE: CASE EVENT DATE: 20250516
